FAERS Safety Report 17675279 (Version 1)
Quarter: 2020Q2

REPORT INFORMATION
  Report Type: Report from Study
  Country: None (occurrence: CA)
  Receive Date: 20200416
  Receipt Date: 20200416
  Transmission Date: 20200714
  Serious: Yes (Hospitalization, Other)
  Sender: FDA-Public Use
  Company Number: CA-ABBVIE-20K-028-3365451-00

PATIENT
  Age: 64 Year
  Sex: Male

DRUGS (1)
  1. HUMIRA [Suspect]
     Active Substance: ADALIMUMAB
     Indication: PSORIASIS
     Route: 058
     Dates: start: 20090709

REACTIONS (7)
  - Walking aid user [Unknown]
  - Post procedural haemorrhage [Recovered/Resolved]
  - Skin lesion [Recovered/Resolved]
  - Rash macular [Not Recovered/Not Resolved]
  - Diabetes mellitus [Unknown]
  - Hip surgery [Recovered/Resolved]
  - Localised infection [Recovered/Resolved]

NARRATIVE: CASE EVENT DATE: 201912
